FAERS Safety Report 9261415 (Version 1)
Quarter: 2013Q2

REPORT INFORMATION
  Report Type: Spontaneous
  Country: US (occurrence: US)
  Receive Date: 20130429
  Receipt Date: 20130429
  Transmission Date: 20140414
  Serious: Yes (Other)
  Sender: FDA-Public Use
  Company Number: US-BAYER-2013-050182

PATIENT
  Age: 26 Year
  Sex: Female
  Weight: 52.15 kg

DRUGS (2)
  1. BAYER CHEWABLE LOW DOSE BABY ASPIRIN TABLET CHERRY [Suspect]
     Indication: CHEST PAIN
     Dosage: 2 DF, QD
     Route: 048
     Dates: start: 201303, end: 20130417
  2. PRENATAL [VIT C,B5,B12,D2,B3,B6,RETINOL PALMIT,B2,B1 MONONITR] [Concomitant]

REACTIONS (4)
  - Dyspnoea [Not Recovered/Not Resolved]
  - Muscular weakness [Not Recovered/Not Resolved]
  - Incorrect drug administration duration [None]
  - Headache [Not Recovered/Not Resolved]
